FAERS Safety Report 6124133-7 (Version None)
Quarter: 2009Q1

REPORT INFORMATION
  Report Type: 
  Country: None (occurrence: None)
  Receive Date: 20090319
  Receipt Date: 20090311
  Transmission Date: 20090719
  Serious: Yes (Hospitalization, Other)
  Sender: FDA-Public Use
  Company Number: US-ASTRAZENECA-2009UW06404

PATIENT
  Age: 75 Year
  Sex: Female
  Weight: 68 kg

DRUGS (12)
  1. METOPROLOL TARTRATE [Suspect]
     Indication: HYPERTENSION
     Route: 048
     Dates: start: 20090117
  2. BEVACIZUMAB [Suspect]
     Indication: BREAST CANCER
     Route: 042
     Dates: end: 20090211
  3. PACLITAXEL [Suspect]
     Indication: BREAST CANCER
     Dates: start: 20080430
  4. GABAPENTIN [Concomitant]
     Dates: start: 20090121
  5. XANAX [Concomitant]
     Dates: start: 20060320
  6. CELEXA [Concomitant]
     Dates: start: 20060101
  7. SYNTHROID [Concomitant]
     Dates: start: 20080924
  8. VITAMIN B COMPLEX CAP [Concomitant]
     Dates: start: 20081231
  9. DECADRON [Concomitant]
     Dates: start: 20090128
  10. ONDASETRON [Concomitant]
     Dates: start: 20090128
  11. CIMETIDINE HCL [Concomitant]
     Dates: start: 20090128
  12. BENADRYL [Concomitant]
     Dates: start: 20090128

REACTIONS (2)
  - BLOOD PRESSURE INCREASED [None]
  - ORTHOSTATIC HYPOTENSION [None]
